FAERS Safety Report 24346679 (Version 3)
Quarter: 2025Q1

REPORT INFORMATION
  Report Type: Spontaneous
  Country: JP (occurrence: JP)
  Receive Date: 20240921
  Receipt Date: 20250124
  Transmission Date: 20250409
  Serious: Yes (Death, Other)
  Sender: UNITED THERAPEUTICS
  Company Number: JP-UNITED THERAPEUTICS-UNT-2024-029694

PATIENT
  Sex: Male

DRUGS (1)
  1. TYVASO [Suspect]
     Active Substance: TREPROSTINIL
     Indication: Anomalous pulmonary venous connection

REACTIONS (4)
  - Sepsis [Fatal]
  - Condition aggravated [Fatal]
  - Anomalous pulmonary venous connection [Fatal]
  - Off label use [Unknown]

NARRATIVE: CASE EVENT DATE: 20240901
